FAERS Safety Report 23224460 (Version 4)
Quarter: 2024Q1

REPORT INFORMATION
  Report Type: Spontaneous
  Country: JP (occurrence: None)
  Receive Date: 20231124
  Receipt Date: 20240206
  Transmission Date: 20240409
  Serious: Yes (Death, Hospitalization, Other)
  Sender: FDA-Public Use
  Company Number: JP-ROCHE-3460744

PATIENT
  Age: 74 Year
  Sex: Male
  Weight: 41 kg

DRUGS (24)
  1. RITUXAN [Suspect]
     Active Substance: RITUXIMAB
     Indication: Diffuse large B-cell lymphoma
     Route: 041
     Dates: start: 20230919, end: 20230919
  2. RITUXAN [Suspect]
     Active Substance: RITUXIMAB
     Indication: Diffuse large B-cell lymphoma
  3. POLIVY [Suspect]
     Active Substance: POLATUZUMAB VEDOTIN-PIIQ
     Indication: Diffuse large B-cell lymphoma
     Route: 042
     Dates: start: 202310
  4. POLIVY [Suspect]
     Active Substance: POLATUZUMAB VEDOTIN-PIIQ
     Route: 042
  5. CYCLOPHOSPHAMIDE [Suspect]
     Active Substance: CYCLOPHOSPHAMIDE
     Indication: Diffuse large B-cell lymphoma
     Route: 042
  6. PREDNISOLONE [Suspect]
     Active Substance: PREDNISOLONE
     Indication: Diffuse large B-cell lymphoma
     Route: 048
  7. DOXORUBICIN HYDROCHLORIDE [Suspect]
     Active Substance: DOXORUBICIN HYDROCHLORIDE
     Indication: Diffuse large B-cell lymphoma
     Route: 042
  8. FILGRASTIM [Concomitant]
     Active Substance: FILGRASTIM
     Route: 042
     Dates: start: 20231009, end: 20231015
  9. SODIUM CHLORIDE [Concomitant]
     Active Substance: SODIUM CHLORIDE
     Route: 065
     Dates: start: 20231006, end: 20231009
  10. DAYVIGO [Concomitant]
     Active Substance: LEMBOREXANT
     Route: 050
     Dates: start: 20231006, end: 20231009
  11. TRAZODONE HYDROCHLORIDE [Concomitant]
     Active Substance: TRAZODONE HYDROCHLORIDE
     Route: 048
     Dates: start: 20231006, end: 20231009
  12. VONOPRAZAN FUMARATE [Concomitant]
     Active Substance: VONOPRAZAN FUMARATE
     Route: 048
     Dates: start: 20230902, end: 20231009
  13. PANTETHINE [Concomitant]
     Active Substance: PANTETHINE
     Route: 048
     Dates: start: 20230926, end: 20231009
  14. MAGNESIUM OXIDE [Concomitant]
     Active Substance: MAGNESIUM OXIDE
     Route: 048
     Dates: start: 20230926, end: 20231009
  15. FLUCONAZOLE [Concomitant]
     Active Substance: FLUCONAZOLE
     Route: 048
     Dates: start: 20230926, end: 20231009
  16. LEVOFLOXACIN [Concomitant]
     Active Substance: LEVOFLOXACIN
     Route: 048
     Dates: start: 20230928, end: 20231009
  17. SULFAMETHOXAZOLE\TRIMETHOPRIM [Concomitant]
     Active Substance: SULFAMETHOXAZOLE\TRIMETHOPRIM
     Route: 048
     Dates: start: 20230929, end: 20231009
  18. AMITIZA [Concomitant]
     Active Substance: LUBIPROSTONE
     Route: 048
     Dates: start: 20231005, end: 20231009
  19. RASBURICASE [Concomitant]
     Active Substance: RASBURICASE
     Route: 042
     Dates: start: 20230913, end: 20230913
  20. MEROPENEM [Concomitant]
     Active Substance: MEROPENEM
     Route: 042
     Dates: start: 20231011, end: 20231013
  21. VANCOMYCIN [Concomitant]
     Active Substance: VANCOMYCIN
     Route: 042
     Dates: start: 20231011, end: 20231013
  22. MICAFUNGIN [Concomitant]
     Active Substance: MICAFUNGIN SODIUM
     Route: 041
     Dates: start: 20231011, end: 20231011
  23. METRONIDAZOLE [Concomitant]
     Active Substance: METRONIDAZOLE
     Route: 041
     Dates: start: 20231012, end: 20231018
  24. FENTANYL [Concomitant]
     Active Substance: FENTANYL\FENTANYL CITRATE
     Route: 003
     Dates: start: 20231102

REACTIONS (10)
  - Small intestinal perforation [Fatal]
  - Coronavirus pneumonia [Recovering/Resolving]
  - Gastric ulcer [Fatal]
  - Mouth ulceration [Unknown]
  - Cytomegalovirus infection [Unknown]
  - Cell marker increased [Unknown]
  - Pneumonia aspiration [Unknown]
  - Pneumocystis jirovecii pneumonia [Unknown]
  - Aspergillus test positive [Unknown]
  - Pancreatitis [Unknown]

NARRATIVE: CASE EVENT DATE: 20231014
